FAERS Safety Report 7263619-9 (Version None)
Quarter: 2011Q1

REPORT INFORMATION
  Report Type: 
  Country: None (occurrence: None)
  Receive Date: 20110130
  Receipt Date: 20101105
  Transmission Date: 20110831
  Serious: No
  Sender: FDA-Public Use
  Company Number: US-ABBOTT-10P-163-0684051-00

PATIENT
  Sex: Female
  Weight: 90.8 kg

DRUGS (5)
  1. PREDNISONE [Concomitant]
     Indication: RHEUMATOID ARTHRITIS
  2. HUMIRA [Suspect]
     Indication: RHEUMATOID ARTHRITIS
     Dates: start: 20050101, end: 20060101
  3. NAPROXEN [Concomitant]
     Indication: RHEUMATOID ARTHRITIS
  4. PREVACID [Concomitant]
     Indication: ABDOMINAL DISCOMFORT
  5. HUMIRA [Suspect]
     Dates: start: 20101001

REACTIONS (2)
  - TUBERCULOSIS [None]
  - COUGH [None]
